FAERS Safety Report 10155870 (Version 1)
Quarter: 2014Q2

REPORT INFORMATION
  Report Type: Spontaneous
  Country: SE (occurrence: SE)
  Receive Date: 20140506
  Receipt Date: 20140506
  Transmission Date: 20141212
  Serious: Yes (Congenital Anomaly)
  Sender: FDA-Public Use
  Company Number: SE-WATSON-2014-08908

PATIENT
  Sex: Male

DRUGS (1)
  1. LAMOTRIGIN ACTAVIS [Suspect]
     Indication: PRODUCT USED FOR UNKNOWN INDICATION
     Dosage: UNK; LAMOTRIGIN ACTAVIS 200 MG TABLET AND 50 MG TABLET
     Route: 064

REACTIONS (1)
  - Ankyloglossia congenital [Recovered/Resolved]
